FAERS Safety Report 16551764 (Version 2)
Quarter: 2019Q4

REPORT INFORMATION
  Report Type: Spontaneous
  Country: GB (occurrence: GB)
  Receive Date: 20190710
  Receipt Date: 20191010
  Transmission Date: 20200122
  Serious: Yes (Other)
  Sender: FDA-Public Use
  Company Number: GB-PFIZER INC-2019291236

PATIENT
  Age: 37 Year
  Sex: Female
  Weight: 48.6 kg

DRUGS (1)
  1. TOFACITINIB CITRATE [Suspect]
     Active Substance: TOFACITINIB CITRATE
     Indication: COLITIS ULCERATIVE
     Dosage: 10 MG, 2X/DAY
     Route: 048
     Dates: start: 20190131

REACTIONS (5)
  - Dermatitis acneiform [Unknown]
  - Pustule [Unknown]
  - Papule [Unknown]
  - Rash [Unknown]
  - Erythema [Unknown]
